FAERS Safety Report 7332023-7 (Version None)
Quarter: 2011Q1

REPORT INFORMATION
  Report Type: 
  Country: None (occurrence: None)
  Receive Date: 20110304
  Receipt Date: 20110125
  Transmission Date: 20110831
  Serious: Yes (Death)
  Sender: FDA-Public Use
  Company Number: US-TYCO HEALTHCARE/MALLINCKRODT-T201100438

PATIENT
  Sex: Female

DRUGS (11)
  1. OXYCONTIN [Suspect]
     Route: 048
  2. LISINOPRIL [Suspect]
     Route: 048
  3. TRAMADOL HCL [Suspect]
     Route: 048
  4. PROMETHAZINE [Suspect]
     Route: 048
  5. CLONAZEPAM [Suspect]
     Route: 048
  6. SIMVASTATIN [Suspect]
     Route: 048
  7. OXYCODONE [Suspect]
     Route: 048
  8. METFORMIN [Suspect]
     Route: 048
  9. VENLAFAXINE [Suspect]
     Route: 048
  10. MELOXICAM [Suspect]
     Route: 048
  11. ETHANOL [Suspect]
     Route: 048

REACTIONS (1)
  - DEATH [None]
